FAERS Safety Report 5642597-X (Version None)
Quarter: 2008Q1

REPORT INFORMATION
  Report Type: 
  Country: None (occurrence: None)
  Receive Date: 20080228
  Receipt Date: 20080225
  Transmission Date: 20080703
  Serious: Yes (Death, Hospitalization)
  Sender: FDA-Public Use
  Company Number: US-BRISTOL-MYERS SQUIBB COMPANY-14089452

PATIENT
  Age: 73 Year
  Sex: Female
  Weight: 51 kg

DRUGS (25)
  1. CISPLATIN [Suspect]
     Indication: SQUAMOUS CELL CARCINOMA
     Route: 042
     Dates: start: 20071218, end: 20080115
  2. RADIOTHERAPY [Suspect]
     Indication: SQUAMOUS CELL CARCINOMA
     Dosage: IMRT WEEKDAYS
     Route: 030
     Dates: start: 20071218, end: 20080126
  3. CAPHOSOL [Concomitant]
     Indication: MUCOSAL INFLAMMATION
  4. VANTIN [Concomitant]
     Indication: URINARY TRACT INFECTION
  5. DECADRON [Concomitant]
     Indication: NAUSEA
     Dosage: THERAPY DATES: 19DEC07-NI; 28DEC07-30DEC07; 03JAN08-05JAN08; 09JAN08-11JAN08; 16JAN08-18JAN08.
     Dates: start: 20071219, end: 20080118
  6. DIGOXIN [Concomitant]
     Indication: ATRIAL FIBRILLATION
     Dates: start: 20050701
  7. FENTANYL [Concomitant]
     Indication: PAIN
  8. DILAUDID [Concomitant]
     Indication: PAIN
  9. LACTULOSE [Concomitant]
     Indication: CONSTIPATION
  10. MILK OF MAGNESIA [Concomitant]
     Indication: CONSTIPATION
     Dates: start: 20071220
  11. NEXIUM [Concomitant]
     Indication: DYSPEPSIA
     Route: 048
     Dates: start: 20070115
  12. NORVASC [Concomitant]
     Indication: BLOOD PRESSURE
     Dates: start: 20071107
  13. SENOKOT [Concomitant]
     Indication: CONSTIPATION
     Dates: start: 20071228
  14. TOPROL-XL [Concomitant]
     Indication: BLOOD PRESSURE
     Dates: start: 20010701
  15. TYLENOL (CAPLET) [Concomitant]
     Indication: BACK PAIN
  16. WHEAT GRASS [Concomitant]
     Dates: start: 20020515
  17. ZOFRAN [Concomitant]
     Indication: NAUSEA
     Dates: start: 20071222
  18. ZOFRAN [Concomitant]
     Indication: VOMITING
     Dates: start: 20071222
  19. COUMADIN [Concomitant]
     Indication: ATRIAL FIBRILLATION
     Dates: start: 20050701, end: 20080126
  20. EVISTA [Concomitant]
     Indication: OSTEOPOROSIS
     Dates: start: 19980701
  21. VITAMIN CAP [Concomitant]
     Indication: VITAMIN SUPPLEMENTATION
     Dates: start: 19970701
  22. BACTRIM [Concomitant]
     Indication: URINARY TRACT INFECTION
     Dates: start: 20080110, end: 20080117
  23. DURAGESIC-100 [Concomitant]
     Indication: ORAL PAIN
     Dosage: THERAPY DATES: 07JAN08-10JAN08; 10JAN08-14JAN08; 15JAN08-21JAN08; 21JAN08-NI
     Dates: start: 20080107
  24. CEFEPIME [Concomitant]
     Dates: start: 20080122
  25. HYDROMORPHONE HCL [Concomitant]
     Indication: ORAL PAIN
     Dosage: THERAPY DATES: 15JAN08-NI; 22JAN08-NI
     Dates: start: 20080115

REACTIONS (9)
  - ACUTE RESPIRATORY DISTRESS SYNDROME [None]
  - DEATH [None]
  - DEHYDRATION [None]
  - DIARRHOEA [None]
  - INTERNATIONAL NORMALISED RATIO INCREASED [None]
  - MYOCARDIAL ISCHAEMIA [None]
  - NEUTROPENIA [None]
  - PNEUMONIA [None]
  - RENAL FAILURE [None]
